FAERS Safety Report 13072295 (Version 1)
Quarter: 2016Q4

REPORT INFORMATION
  Report Type: Report from Study
  Country: US (occurrence: US)
  Receive Date: 20161229
  Receipt Date: 20161229
  Transmission Date: 20170207
  Serious: Yes (Death, Hospitalization, Other)
  Sender: FDA-Public Use
  Company Number: US-GILEAD-2016-0247097

PATIENT
  Age: 19 Year
  Sex: Male
  Weight: 38.3 kg

DRUGS (38)
  1. PENTASA [Concomitant]
     Active Substance: MESALAMINE
     Dosage: UNK
     Dates: start: 20160826
  2. BETHANECHOL [Concomitant]
     Active Substance: BETHANECHOL
  3. RELIZORB [Concomitant]
  4. NOVOLIN 70/30 [Concomitant]
     Active Substance: INSULIN HUMAN
  5. CREON [Concomitant]
     Active Substance: PANCRELIPASE AMYLASE\PANCRELIPASE LIPASE\PANCRELIPASE PROTEASE
  6. ZANTAC [Concomitant]
     Active Substance: RANITIDINE HYDROCHLORIDE
  7. PREDNISONE. [Concomitant]
     Active Substance: PREDNISONE
     Dosage: 6 MG, BID
     Dates: start: 201609
  8. NUTREN 2.0 [Concomitant]
  9. POSACONAZOLE [Concomitant]
     Active Substance: POSACONAZOLE
  10. CEFTAROLINE [Concomitant]
     Active Substance: CEFTAROLINE
     Dosage: UNK, 21 DAYS
     Route: 042
     Dates: start: 201608, end: 20160830
  11. CEFTAZIDIME. [Concomitant]
     Active Substance: CEFTAZIDIME
     Dosage: UNK
     Route: 042
     Dates: start: 201608
  12. LINEZOLID. [Concomitant]
     Active Substance: LINEZOLID
     Dosage: UNK
     Route: 048
     Dates: start: 201608
  13. CHOLECALCIFEROL [Concomitant]
     Active Substance: CHOLECALCIFEROL
  14. DRONABINOL. [Concomitant]
     Active Substance: DRONABINOL
  15. PREDNISOLONE. [Concomitant]
     Active Substance: PREDNISOLONE
  16. AZTREONAM LYSINE [Suspect]
     Active Substance: AZTREONAM LYSINE
     Dosage: 75 MG, TID
     Route: 055
     Dates: start: 201609
  17. OXYGEN. [Concomitant]
     Active Substance: OXYGEN
     Dosage: 4  LPM WITH NASAL CANNULA DURING DAY AND BLENDED WITH H2O AT NIGHT VIA BIPAP
  18. CYSTEAMINE                         /00492501/ [Concomitant]
     Active Substance: CYSTEAMINE
  19. FLUTICASONE [Concomitant]
     Active Substance: FLUTICASONE\FLUTICASONE PROPIONATE
  20. LIDOCAINE W/PRILOCAINE [Concomitant]
  21. AZTREONAM LYSINE [Suspect]
     Active Substance: AZTREONAM LYSINE
     Indication: PSEUDOMONAS INFECTION
     Dosage: 75 MG, UNK
     Route: 055
     Dates: start: 20100409
  22. ALBUTEROL HFA [Concomitant]
     Active Substance: ALBUTEROL SULFATE
  23. ADVAIR HFA [Concomitant]
     Active Substance: FLUTICASONE PROPIONATE\SALMETEROL XINAFOATE
  24. HUMALOG [Concomitant]
     Active Substance: INSULIN LISPRO
  25. ONDANSETRON [Concomitant]
     Active Substance: ONDANSETRON
  26. MEPHYTON [Concomitant]
     Active Substance: PHYTONADIONE
  27. MINOCYCLINE [Concomitant]
     Active Substance: MINOCYCLINE\MINOCYCLINE HYDROCHLORIDE
     Dosage: UNK, 23 DAYS
     Dates: start: 20151221, end: 20160830
  28. AZITHROMYCIN ANHYDROUS. [Concomitant]
     Active Substance: AZITHROMYCIN ANHYDROUS
  29. MINOCYCLINE [Concomitant]
     Active Substance: MINOCYCLINE\MINOCYCLINE HYDROCHLORIDE
     Dosage: UNK
     Dates: start: 201609
  30. TOBI [Concomitant]
     Active Substance: TOBRAMYCIN
     Dosage: UNK
     Route: 055
     Dates: start: 201608
  31. PREDNISONE. [Concomitant]
     Active Substance: PREDNISONE
     Indication: ADRENAL INSUFFICIENCY
     Dosage: 6 MG, QD
     Dates: end: 201609
  32. AQUADEKS                           /07679501/ [Concomitant]
     Active Substance: MINERALS\VITAMINS
  33. AZTREONAM LYSINE [Suspect]
     Active Substance: AZTREONAM LYSINE
     Indication: CYSTIC FIBROSIS LUNG
     Dosage: 75 MG, 23 DAYS
     Route: 055
     Dates: start: 201608, end: 20160830
  34. ALBUTEROL                          /00139501/ [Concomitant]
     Active Substance: ALBUTEROL
  35. PULMOZYME [Concomitant]
     Active Substance: DORNASE ALFA
  36. GLUCAGON. [Concomitant]
     Active Substance: GLUCAGON
  37. MINOXIDIL. [Concomitant]
     Active Substance: MINOXIDIL
  38. TERBINAFINE. [Concomitant]
     Active Substance: TERBINAFINE

REACTIONS (9)
  - Acute respiratory failure [Unknown]
  - Unevaluable event [Unknown]
  - Infective pulmonary exacerbation of cystic fibrosis [Fatal]
  - Basal ganglia infarction [Unknown]
  - Acute kidney injury [Unknown]
  - Lung consolidation [Unknown]
  - Hyperbilirubinaemia [Unknown]
  - Pneumonia [Unknown]
  - Pulmonary haemorrhage [Unknown]

NARRATIVE: CASE EVENT DATE: 2016
